FAERS Safety Report 20831606 (Version 1)
Quarter: 2022Q2

REPORT INFORMATION
  Report Type: Spontaneous
  Country: CN (occurrence: CN)
  Receive Date: 20220516
  Receipt Date: 20220516
  Transmission Date: 20220720
  Serious: Yes (Hospitalization)
  Sender: FDA-Public Use
  Company Number: CN-EPICPHARMA-CN-2022EPCLIT00276

PATIENT
  Age: 39 Year
  Sex: Female

DRUGS (4)
  1. ISONIAZID [Suspect]
     Active Substance: ISONIAZID
     Indication: Tuberculous pleurisy
     Route: 065
     Dates: start: 201812
  2. ETHAMBUTOL HYDROCHLORIDE [Suspect]
     Active Substance: ETHAMBUTOL HYDROCHLORIDE
     Indication: Tuberculous pleurisy
     Route: 065
     Dates: start: 201812
  3. RIFAMPIN [Suspect]
     Active Substance: RIFAMPIN
     Indication: Tuberculous pleurisy
     Route: 065
     Dates: start: 201812
  4. PYRAZINAMIDE [Suspect]
     Active Substance: PYRAZINAMIDE
     Indication: Tuberculous pleurisy
     Route: 065
     Dates: start: 201812

REACTIONS (2)
  - Myopathy [Unknown]
  - Drug-induced liver injury [Unknown]
